FAERS Safety Report 6551570-9 (Version None)
Quarter: 2010Q1

REPORT INFORMATION
  Report Type: 
  Country: None (occurrence: None)
  Receive Date: 20100122
  Receipt Date: 20090421
  Transmission Date: 20100710
  Serious: Yes (Hospitalization)
  Sender: FDA-Public Use
  Company Number: WAES 0904USA03439

PATIENT

DRUGS (1)
  1. INVANZ [Suspect]
     Dosage: 1 GM/DAILY/IV
     Route: 042

REACTIONS (1)
  - CONVULSION [None]
